FAERS Safety Report 9490649 (Version 1)
Quarter: 2013Q3

REPORT INFORMATION
  Report Type: Spontaneous
  Country: ES (occurrence: ES)
  Receive Date: 20130830
  Receipt Date: 20130830
  Transmission Date: 20140515
  Serious: Yes (Hospitalization)
  Sender: FDA-Public Use
  Company Number: PHHY2013ES093648

PATIENT
  Age: 80 Year
  Sex: Female

DRUGS (7)
  1. MYFORTIC [Suspect]
     Indication: PROPHYLAXIS
     Dosage: 360 MG, BID
     Route: 048
     Dates: start: 201207, end: 20130202
  2. SEPTRIN FORTE [Suspect]
     Indication: PROPHYLAXIS
     Dosage: 160/800MG TID
     Route: 048
     Dates: start: 2011, end: 20130202
  3. LEVETIRACETAM [Concomitant]
     Dosage: 1000 MG, BID
     Route: 048
  4. QUETIAPINA [Concomitant]
     Dosage: 50 MG, ONCE/SINGLE
     Route: 048
  5. OMEPRAZOLE [Concomitant]
     Indication: PROPHYLAXIS
     Dosage: 20 MG, ONCE/SINGLE
     Route: 048
  6. CITALOPRAM [Concomitant]
     Dosage: 20 MG, ONCE/SINGLE
     Route: 048
  7. VITAMIN B12 [Concomitant]
     Dosage: UNK UKN, UNK

REACTIONS (1)
  - Pancytopenia [Recovered/Resolved]
